FAERS Safety Report 18382759 (Version 1)
Quarter: 2020Q4

REPORT INFORMATION
  Report Type: Spontaneous
  Country: PL (occurrence: PL)
  Receive Date: 20201014
  Receipt Date: 20201014
  Transmission Date: 20210114
  Serious: Yes (Hospitalization)
  Sender: FDA-Public Use
  Company Number: NVSC2020PL273006

PATIENT
  Age: 42 Year
  Sex: Male
  Weight: 80 kg

DRUGS (6)
  1. ENOXAPARIN [Suspect]
     Active Substance: ENOXAPARIN
     Dosage: 80 MG, UNKNOWN
     Route: 058
  2. METOPROLOL. [Suspect]
     Active Substance: METOPROLOL
     Indication: CARDIAC FAILURE
     Dosage: 37.5 MG, QD (3 X 12.5 MG)
     Route: 065
  3. POTASSIUM [Suspect]
     Active Substance: POTASSIUM
     Indication: PRODUCT USED FOR UNKNOWN INDICATION
     Dosage: UNK
     Route: 065
  4. GLYCERYL TNT [Suspect]
     Active Substance: NITROGLYCERIN
     Indication: HEART RATE ABNORMAL
     Dosage: UNK
     Route: 042
  5. RAMIPRIL. [Suspect]
     Active Substance: RAMIPRIL
     Indication: CARDIAC FAILURE
     Dosage: 5 MG, QD (2 X 2.5 MG)
     Route: 065
  6. ENOXAPARIN [Suspect]
     Active Substance: ENOXAPARIN
     Indication: MYOCARDITIS
     Dosage: 160 MG, QD (2 X 80 MG)
     Route: 065

REACTIONS (4)
  - Glomerular filtration rate abnormal [Recovering/Resolving]
  - Renal impairment [Recovering/Resolving]
  - Blood creatine increased [Recovering/Resolving]
  - Cardiac failure [Unknown]
